FAERS Safety Report 7512439-6 (Version None)
Quarter: 2011Q2

REPORT INFORMATION
  Report Type: 
  Country: None (occurrence: None)
  Receive Date: 20110520
  Receipt Date: 20110506
  Transmission Date: 20111010
  Serious: No
  Sender: FDA-Public Use
  Company Number: 1000019594

PATIENT
  Age: 86 Year
  Sex: Male

DRUGS (4)
  1. VENLAFAXINE HCL [Suspect]
  2. SEROQUEL [Suspect]
     Indication: HALLUCINATION
     Dosage: 12.5 MG,ORAL
     Route: 048
     Dates: end: 20110113
  3. MEMANTINE [Suspect]
     Indication: DEMENTIA ALZHEIMER'S TYPE
     Dosage: 15 MG (15 MG, 1 IN 1 D),ORAL
     Route: 048
     Dates: start: 20100413, end: 20110113
  4. ARICEPT [Concomitant]

REACTIONS (4)
  - AGITATION [None]
  - DELIRIUM [None]
  - GAIT DISTURBANCE [None]
  - RESTLESSNESS [None]
